FAERS Safety Report 23828164 (Version 1)
Quarter: 2024Q2

REPORT INFORMATION
  Report Type: Spontaneous
  Country: US (occurrence: US)
  Receive Date: 20240508
  Receipt Date: 20240508
  Transmission Date: 20240715
  Serious: No
  Sender: FDA-Public Use
  Company Number: US-JNJFOC-20240506084

PATIENT

DRUGS (7)
  1. OPSUMIT [Interacting]
     Active Substance: MACITENTAN
     Indication: Product used for unknown indication
     Route: 048
  2. TADALAFIL [Interacting]
     Active Substance: TADALAFIL
     Indication: Product used for unknown indication
     Route: 065
  3. REMODULIN [Concomitant]
     Active Substance: TREPROSTINIL
  4. TYVASO [Concomitant]
     Active Substance: TREPROSTINIL
  5. ORENITRAM [Concomitant]
     Active Substance: TREPROSTINIL
  6. TREPROSTINIL [Concomitant]
     Active Substance: TREPROSTINIL
  7. UNITUXIN [Concomitant]
     Active Substance: DINUTUXIMAB

REACTIONS (1)
  - Drug interaction [Unknown]
